FAERS Safety Report 9470076 (Version 3)
Quarter: 2014Q1

REPORT INFORMATION
  Report Type: Spontaneous
  Country: US (occurrence: US)
  Receive Date: 20130822
  Receipt Date: 20140328
  Transmission Date: 20141002
  Serious: Yes (Other)
  Sender: FDA-Public Use
  Company Number: US-JNJFOC-20130807995

PATIENT
  Age: 62 Year
  Sex: Male
  Weight: 91.63 kg

DRUGS (6)
  1. REMICADE [Suspect]
     Indication: CROHN^S DISEASE
     Route: 042
     Dates: start: 20120709
  2. SOLU CORTEF [Suspect]
     Indication: PREMEDICATION
     Route: 042
     Dates: start: 20120709
  3. LIPITOR [Suspect]
     Indication: HYPERCHOLESTEROLAEMIA
     Route: 048
  4. LIALDA [Suspect]
     Indication: CROHN^S DISEASE
     Route: 048
     Dates: start: 2011
  5. IMURAN [Concomitant]
     Route: 065
  6. CENTRUM NOS [Concomitant]
     Indication: VITAMIN SUPPLEMENTATION
     Route: 065

REACTIONS (3)
  - Squamous cell carcinoma [Recovering/Resolving]
  - Basal cell carcinoma [Recovering/Resolving]
  - Malignant melanoma [Recovering/Resolving]
